FAERS Safety Report 9651932 (Version 1)
Quarter: 2013Q4

REPORT INFORMATION
  Report Type: Spontaneous
  Country: US (occurrence: None)
  Receive Date: 20131028
  Receipt Date: 20131028
  Transmission Date: 20140711
  Serious: Yes (Hospitalization)
  Sender: FDA-Public Use
  Company Number: None

PATIENT
  Age: 44 Year
  Sex: Female
  Weight: 117 kg

DRUGS (6)
  1. HYDROMORPHONE [Suspect]
     Indication: PAIN
     Dosage: HYDROMORPHONE, PRN/ AS NEEDED, IV
     Dates: start: 20110421, end: 20110421
  2. FENTANYL PATCH [Concomitant]
  3. GABAPENTIN [Concomitant]
  4. ONDANSETRON [Concomitant]
  5. SENNA [Concomitant]
  6. PREDNISONE [Concomitant]

REACTIONS (1)
  - Respiratory depression [None]
